FAERS Safety Report 7961686-8 (Version None)
Quarter: 2011Q4

REPORT INFORMATION
  Report Type: 
  Country: None (occurrence: None)
  Receive Date: 20111207
  Receipt Date: 20111124
  Transmission Date: 20120403
  Serious: Yes (Hospitalization, Other)
  Sender: FDA-Public Use
  Company Number: DE-ELI_LILLY_AND_COMPANY-DE201111007673

PATIENT
  Age: 46 Year
  Sex: Male

DRUGS (3)
  1. ZYPREXA [Suspect]
     Dosage: 15 MG, QD
     Route: 048
     Dates: start: 20110516, end: 20110518
  2. ZYPREXA [Suspect]
     Dosage: 20 MG, QD
     Route: 048
     Dates: start: 20110519, end: 20110526
  3. ZYPREXA [Suspect]
     Dosage: 25 MG, QD
     Route: 048
     Dates: start: 20110527, end: 20110529

REACTIONS (3)
  - BLOOD SODIUM DECREASED [None]
  - OVERDOSE [None]
  - GRAND MAL CONVULSION [None]
